FAERS Safety Report 10263134 (Version 2)
Quarter: 2014Q2

REPORT INFORMATION
  Report Type: Report from Study
  Country: US (occurrence: US)
  Receive Date: 20140626
  Receipt Date: 20140626
  Transmission Date: 20141212
  Serious: Yes (Other)
  Sender: FDA-Public Use
  Company Number: US-MYLANLABS-2014S1002584

PATIENT
  Age: 51 Year
  Sex: Female
  Weight: 58 kg

DRUGS (9)
  1. CLOZAPINE TABLETS [Suspect]
     Indication: PSYCHOTIC DISORDER
     Route: 048
     Dates: start: 201310, end: 20140506
  2. CLOZAPINE TABLETS [Suspect]
     Indication: PSYCHOTIC DISORDER
     Route: 048
     Dates: start: 201310, end: 20140506
  3. CLOZAPINE TABLETS [Suspect]
     Indication: PSYCHOTIC DISORDER
     Route: 048
     Dates: start: 20140513
  4. MINOCYCLINE [Suspect]
     Route: 048
     Dates: start: 201403, end: 20140508
  5. ATENOLOL [Concomitant]
     Route: 048
     Dates: start: 201310
  6. TOPAMAX [Concomitant]
     Route: 048
     Dates: start: 201310
  7. DOXEPIN [Concomitant]
     Route: 048
     Dates: start: 201310
  8. DEPAKOTE [Concomitant]
     Dosage: ER
     Route: 048
     Dates: start: 201310
  9. COGENTIN [Concomitant]
     Dosage: 1MG QAM AND 2MG QHS
     Route: 048
     Dates: start: 201310

REACTIONS (2)
  - Granulocytopenia [Not Recovered/Not Resolved]
  - Leukopenia [Recovered/Resolved]
